FAERS Safety Report 7096806-3 (Version None)
Quarter: 2010Q4

REPORT INFORMATION
  Report Type: 
  Country: None (occurrence: None)
  Receive Date: 20101111
  Receipt Date: 20100426
  Transmission Date: 20110411
  Serious: No
  Sender: FDA-Public Use
  Company Number: US-KINGPHARMUSA00001-K201000515

PATIENT

DRUGS (1)
  1. FLECTOR [Suspect]
     Dosage: UNK PATCH, UNK
     Route: 061

REACTIONS (2)
  - HEADACHE [None]
  - HYPERTENSION [None]
